FAERS Safety Report 9136176 (Version 1)
Quarter: 2013Q1

REPORT INFORMATION
  Report Type: Spontaneous
  Country: None (occurrence: US)
  Receive Date: 20130304
  Receipt Date: 20130304
  Transmission Date: 20140127
  Serious: No
  Sender: FDA-Public Use
  Company Number: US-ABBOTT-12P-163-0918179-00

PATIENT
  Sex: Male
  Weight: 130.3 kg

DRUGS (16)
  1. ANDROGEL 1% [Suspect]
     Indication: BLOOD TESTOSTERONE DECREASED
     Route: 061
     Dates: start: 201111, end: 201203
  2. ANDROGEL 1% [Suspect]
     Route: 061
     Dates: start: 201011, end: 201111
  3. ANDROGEL 1% [Suspect]
     Route: 061
     Dates: start: 200811, end: 201011
  4. COREG [Concomitant]
     Indication: CARDIAC DISORDER
  5. SIMVASTATIN [Concomitant]
     Indication: BLOOD CHOLESTEROL
  6. REQUIP [Concomitant]
     Indication: RESTLESS LEGS SYNDROME
  7. SPIRALACTONE [Concomitant]
     Indication: CARDIAC DISORDER
  8. WARFARIN [Concomitant]
     Indication: CARDIOMYOPATHY
  9. NEXIUM [Concomitant]
     Indication: GASTROOESOPHAGEAL REFLUX DISEASE
  10. METFORMIN [Concomitant]
     Indication: DIABETES MELLITUS
  11. AMIODARONE [Concomitant]
     Indication: CARDIAC DISORDER
  12. NITROGLYCERINE [Concomitant]
     Indication: CHEST PAIN
     Route: 060
  13. SINGULAIR [Concomitant]
     Indication: CHRONIC OBSTRUCTIVE PULMONARY DISEASE
  14. LASIX [Concomitant]
     Indication: CARDIAC FAILURE CONGESTIVE
  15. GLYBURIDE [Concomitant]
     Indication: DIABETES MELLITUS
  16. LANTUS [Concomitant]
     Indication: DIABETES MELLITUS
     Dosage: PEN

REACTIONS (6)
  - No therapeutic response [Not Recovered/Not Resolved]
  - Blood testosterone decreased [Not Recovered/Not Resolved]
  - Blood testosterone decreased [Not Recovered/Not Resolved]
  - Sluggishness [Not Recovered/Not Resolved]
  - Incorrect storage of drug [Unknown]
  - Product outer packaging issue [Unknown]
